FAERS Safety Report 23721275 (Version 2)
Quarter: 2024Q3

REPORT INFORMATION
  Report Type: Spontaneous
  Country: CN (occurrence: CN)
  Receive Date: 20240409
  Receipt Date: 20240724
  Transmission Date: 20241017
  Serious: Yes (Hospitalization, Other)
  Sender: Haleon PLC
  Company Number: CN-HALEON-2165995

PATIENT
  Sex: Female

DRUGS (1)
  1. ACETAMINOPHEN [Suspect]
     Active Substance: ACETAMINOPHEN
     Indication: Pyrexia
     Dosage: TIME INTERVAL: 0.33333333 DAYS

REACTIONS (14)
  - Stevens-Johnson syndrome [Recovered/Resolved]
  - Toxic epidermal necrolysis [Recovered/Resolved]
  - Cholestasis [Recovered/Resolved]
  - Skin injury [Recovered/Resolved]
  - Papule [Recovered/Resolved]
  - Blister [Recovered/Resolved]
  - Rash [Recovered/Resolved]
  - Yellow skin [Recovered/Resolved]
  - Faeces pale [Recovered/Resolved]
  - Hepatitis [Recovered/Resolved]
  - Vanishing bile duct syndrome [Recovered/Resolved]
  - Cholangitis [Recovered/Resolved]
  - Rash maculo-papular [Recovered/Resolved]
  - Blister [Recovered/Resolved]
